FAERS Safety Report 4809222-9 (Version None)
Quarter: 2005Q4

REPORT INFORMATION
  Report Type: 
  Country: None (occurrence: None)
  Receive Date: 20051021
  Receipt Date: 20051013
  Transmission Date: 20060501
  Serious: Yes (Other)
  Sender: FDA-Public Use
  Company Number: 2005RR-00925

PATIENT
  Sex: Male

DRUGS (6)
  1. CLOMIPRAMINE HCL [Suspect]
     Dosage: TRANSPLACENTAL
     Route: 064
  2. SENNA(SENNA) [Suspect]
     Dosage: TRANSPLACENTAL
     Route: 064
  3. LACTULOSE [Suspect]
     Dosage: TRANSPLACENTAL
     Route: 064
  4. CYCLIZINE(CYCLIZINE) [Suspect]
     Dosage: TRANSPLACENTAL
     Route: 064
  5. GAVISCON [Suspect]
     Dosage: TRANSPLACENTAL
     Route: 064
  6. AMOXICILLIN [Suspect]
     Dosage: TRANSPLACENTAL
     Route: 064

REACTIONS (4)
  - CAESAREAN SECTION [None]
  - DRUG EXPOSURE DURING PREGNANCY [None]
  - GASTROOESOPHAGEAL REFLUX DISEASE [None]
  - NEONATAL DISORDER [None]
